FAERS Safety Report 5816564-7 (Version None)
Quarter: 2008Q3

REPORT INFORMATION
  Report Type: 
  Country: None (occurrence: None)
  Receive Date: 20080717
  Receipt Date: 20080123
  Transmission Date: 20090109
  Serious: Yes (Death, Life-Threatening, Disabling, Other)
  Sender: FDA-Public Use
  Company Number: 2008SP001824

PATIENT
  Age: 54 Year
  Sex: Male
  Weight: 97 kg

DRUGS (10)
  1. INTEGRILIN [Suspect]
     Indication: ACUTE CORONARY SYNDROME
     Dosage: IV
     Route: 042
     Dates: start: 20060903, end: 20060908
  2. ENOXAPARIN SODIUM [Concomitant]
  3. PLAVIX [Concomitant]
  4. ASPIRIN [Concomitant]
  5. AVAPRO [Concomitant]
  6. PRAVACHOL [Concomitant]
  7. LASIX [Concomitant]
  8. METOPROLOL TARTRATE [Concomitant]
  9. IMDUR [Concomitant]
  10. VERAPAMIL [Concomitant]

REACTIONS (2)
  - HAEMORRHAGE INTRACRANIAL [None]
  - THROMBOCYTOPENIA [None]
